FAERS Safety Report 9645404 (Version 3)
Quarter: 2019Q4

REPORT INFORMATION
  Report Type: Spontaneous
  Country: US (occurrence: US)
  Receive Date: 20131025
  Receipt Date: 20191219
  Transmission Date: 20200122
  Serious: Yes (Other)
  Sender: FDA-Public Use
  Company Number: US-UCBSA-085921

PATIENT
  Age: 30 Year
  Sex: Male
  Weight: 65.77 kg

DRUGS (10)
  1. CIMZIA [Suspect]
     Active Substance: CERTOLIZUMAB PEGOL
     Dosage: 400 MG, EV 4 WEEKS
  2. WELCHOL [Concomitant]
     Active Substance: COLESEVELAM HYDROCHLORIDE
     Indication: BILE ACID MALABSORPTION
     Dosage: 625 MG X 2
     Route: 048
     Dates: start: 20110908
  3. PREDNISONE. [Concomitant]
     Active Substance: PREDNISONE
     Indication: CROHN^S DISEASE
     Dosage: 30 MG, ONCE DAILY (QD)
     Dates: start: 20130711
  4. DIAZEPAM. [Concomitant]
     Active Substance: DIAZEPAM
     Dosage: 5MG AS NEEDED
  5. CIMZIA [Suspect]
     Active Substance: CERTOLIZUMAB PEGOL
     Indication: CROHN^S DISEASE
     Dosage: 400 MG EVERY 4 WEEKS, NO OF DOSES: APPROX 50;
     Route: 058
     Dates: start: 20080626
  6. HYDROCORTISON [Concomitant]
     Active Substance: HYDROCORTISONE
     Dosage: UNSPECIFIED DOSE
  7. PEPTO-BISMOL [Concomitant]
     Active Substance: BISMUTH SUBSALICYLATE
     Indication: ANTIDIARRHOEAL SUPPORTIVE CARE
  8. CIMZIA [Suspect]
     Active Substance: CERTOLIZUMAB PEGOL
     Indication: CROHN^S DISEASE
  9. NIFEDIPINE 0.3% OINTMENT [Concomitant]
     Indication: MUSCLE RELAXANT THERAPY
     Dosage: STRENGHT:0.3%, 1 APPLICATION
     Route: 061
     Dates: start: 20110803
  10. PEPTO-BISMOL [Concomitant]
     Active Substance: BISMUTH SUBSALICYLATE
     Indication: ANTACID THERAPY
     Dosage: 30 ML, AS NEEDED (PRN)
     Route: 048
     Dates: start: 20120703

REACTIONS (5)
  - Stress [Not Recovered/Not Resolved]
  - Haematochezia [Unknown]
  - Anxiety [Unknown]
  - Crohn^s disease [Not Recovered/Not Resolved]
  - Muscle strain [Unknown]

NARRATIVE: CASE EVENT DATE: 201005
